FAERS Safety Report 7397488-3 (Version None)
Quarter: 2011Q2

REPORT INFORMATION
  Report Type: 
  Country: None (occurrence: None)
  Receive Date: 20110406
  Receipt Date: 20110325
  Transmission Date: 20111010
  Serious: Yes (Hospitalization)
  Sender: FDA-Public Use
  Company Number: PHHY2011US24716

PATIENT
  Age: 35 Year
  Sex: Female

DRUGS (1)
  1. PHENTERMINE [Suspect]
     Indication: WEIGHT DECREASED
     Dosage: UNK
     Dates: start: 20050101

REACTIONS (10)
  - HAEMORRHAGE INTRACRANIAL [None]
  - OPTIC DISC DISORDER [None]
  - MENTAL STATUS CHANGES [None]
  - AGITATION [None]
  - HYPERTENSION [None]
  - CONFUSIONAL STATE [None]
  - BRAIN OEDEMA [None]
  - BLOOD PRESSURE INCREASED [None]
  - CONVULSION [None]
  - POSTERIOR REVERSIBLE ENCEPHALOPATHY SYNDROME [None]
